FAERS Safety Report 6221409-X (Version None)
Quarter: 2009Q2

REPORT INFORMATION
  Report Type: 
  Country: None (occurrence: None)
  Receive Date: 20090610
  Receipt Date: 20090601
  Transmission Date: 20091009
  Serious: Yes (Life-Threatening, Hospitalization, Other)
  Sender: FDA-Public Use
  Company Number: JP-ABBOTT-04P-087-0272253-00

PATIENT
  Sex: Male

DRUGS (18)
  1. KALETRA [Suspect]
     Indication: HIV INFECTION
     Route: 048
     Dates: start: 20030813, end: 20040913
  2. KALETRA [Suspect]
     Route: 048
     Dates: start: 20041026, end: 20061112
  3. KALETRA [Suspect]
     Indication: HIV INFECTION
     Route: 048
     Dates: start: 20061113
  4. KALETRA [Suspect]
     Route: 048
     Dates: start: 20081101, end: 20090108
  5. KALETRA [Suspect]
     Dates: start: 20090109
  6. NELFINAVIR [Suspect]
     Indication: HIV INFECTION
     Route: 048
     Dates: start: 20030401, end: 20030812
  7. ETIZOLAM [Suspect]
     Indication: MUSCULOSKELETAL STIFFNESS
     Route: 048
     Dates: start: 20081101, end: 20090108
  8. ETIZOLAM [Suspect]
     Route: 048
     Dates: start: 20090109
  9. TENOFOVIR [Concomitant]
     Indication: HIV INFECTION
     Route: 048
     Dates: start: 20030813
  10. ZIDOVUDINE [Concomitant]
     Indication: HIV INFECTION
     Route: 048
     Dates: start: 20030401, end: 20030812
  11. DIDANOSINE [Concomitant]
     Indication: HIV INFECTION
     Route: 048
     Dates: start: 20030813, end: 20040913
  12. ZALCITABINE [Concomitant]
     Indication: HIV INFECTION
     Route: 048
     Dates: start: 20030401, end: 20030812
  13. STAVUDINE [Concomitant]
     Indication: HIV INFECTION
     Route: 048
     Dates: start: 20041026, end: 20041029
  14. STAVUDINE [Concomitant]
     Route: 048
     Dates: start: 20041030, end: 20041105
  15. STAVUDINE [Concomitant]
     Route: 048
     Dates: start: 20041106, end: 20041215
  16. LAMIVUDINE [Concomitant]
     Indication: HIV INFECTION
     Route: 048
     Dates: start: 20041026, end: 20041029
  17. LAMIVUDINE [Concomitant]
     Route: 048
     Dates: start: 20041030
  18. ABACAVIR [Concomitant]
     Indication: HIV INFECTION
     Dates: start: 20041216

REACTIONS (11)
  - BLOOD TRIGLYCERIDES INCREASED [None]
  - BLOOD URIC ACID INCREASED [None]
  - FLATULENCE [None]
  - HEADACHE [None]
  - HYPOAESTHESIA [None]
  - MEASLES [None]
  - PNEUMONIA [None]
  - PNEUMONIA LEGIONELLA [None]
  - RENAL FAILURE ACUTE [None]
  - RESPIRATORY FAILURE [None]
  - RHABDOMYOLYSIS [None]
